FAERS Safety Report 7286616-6 (Version None)
Quarter: 2011Q1

REPORT INFORMATION
  Report Type: 
  Country: None (occurrence: None)
  Receive Date: 20110210
  Receipt Date: 20110128
  Transmission Date: 20110831
  Serious: Yes (Hospitalization)
  Sender: FDA-Public Use
  Company Number: US-CELGENEUS-163-21880-11020050

PATIENT
  Sex: Male

DRUGS (2)
  1. REVLIMID [Suspect]
     Indication: MULTIPLE MYELOMA
     Route: 048
     Dates: start: 20101201
  2. REVLIMID [Suspect]
     Route: 048
     Dates: start: 20110101

REACTIONS (2)
  - PYREXIA [None]
  - LABORATORY TEST ABNORMAL [None]
